FAERS Safety Report 20560463 (Version 4)
Quarter: 2022Q2

REPORT INFORMATION
  Report Type: Report from Study
  Country: IL (occurrence: IL)
  Receive Date: 20220307
  Receipt Date: 20220408
  Transmission Date: 20220720
  Serious: Yes (Hospitalization)
  Sender: FDA-Public Use
  Company Number: IL-GLAXOSMITHKLINE-BE2022GSK037594

PATIENT
  Age: 79 Year
  Sex: Female
  Weight: 55 kg

DRUGS (40)
  1. ATEZOLIZUMAB [Suspect]
     Active Substance: ATEZOLIZUMAB
     Indication: Ovarian epithelial cancer
     Dosage: 800 MG
     Dates: start: 20210420, end: 20210420
  2. DOXORUBICIN [Suspect]
     Active Substance: DOXORUBICIN
     Indication: Ovarian epithelial cancer
     Dosage: 800 MG
     Dates: start: 20210420, end: 20210420
  3. NIRAPARIB [Suspect]
     Active Substance: NIRAPARIB
     Indication: Ovarian epithelial cancer
     Dosage: 800 MG
     Dates: start: 20210420, end: 20210420
  4. PLACEBO [Suspect]
     Active Substance: UNSPECIFIED INGREDIENT
     Indication: Ovarian epithelial cancer
     Dosage: 800 MG
     Dates: start: 20210420, end: 20210420
  5. ATEZOLIZUMAB [Suspect]
     Active Substance: ATEZOLIZUMAB
     Dosage: 840 MG / 1200 MG
     Dates: start: 20210420, end: 20210420
  6. DOXORUBICIN [Suspect]
     Active Substance: DOXORUBICIN
     Dosage: 840 MG / 1200 MG
     Dates: start: 20210420, end: 20210420
  7. NIRAPARIB [Suspect]
     Active Substance: NIRAPARIB
     Dosage: 840 MG / 1200 MG
     Dates: start: 20210420, end: 20210420
  8. PLACEBO [Suspect]
     Active Substance: UNSPECIFIED INGREDIENT
     Dosage: 840 MG / 1200 MG
     Dates: start: 20210420, end: 20210420
  9. ATEZOLIZUMAB [Suspect]
     Active Substance: ATEZOLIZUMAB
     Dosage: 800 MG
     Dates: start: 20211006, end: 20211006
  10. DOXORUBICIN [Suspect]
     Active Substance: DOXORUBICIN
     Dosage: 800 MG
     Dates: start: 20211006, end: 20211006
  11. NIRAPARIB [Suspect]
     Active Substance: NIRAPARIB
     Dosage: 800 MG
     Dates: start: 20211006, end: 20211006
  12. PLACEBO [Suspect]
     Active Substance: UNSPECIFIED INGREDIENT
     Dosage: 800 MG
     Dates: start: 20211006, end: 20211006
  13. ATEZOLIZUMAB [Suspect]
     Active Substance: ATEZOLIZUMAB
     Dosage: 1200 MG
     Dates: start: 20211028, end: 20211028
  14. DOXORUBICIN [Suspect]
     Active Substance: DOXORUBICIN
     Dosage: 1200 MG
     Dates: start: 20211028, end: 20211028
  15. NIRAPARIB [Suspect]
     Active Substance: NIRAPARIB
     Dosage: 1200 MG
     Dates: start: 20211028, end: 20211028
  16. PLACEBO [Suspect]
     Active Substance: UNSPECIFIED INGREDIENT
     Dosage: 1200 MG
     Dates: start: 20211028, end: 20211028
  17. ATEZOLIZUMAB [Suspect]
     Active Substance: ATEZOLIZUMAB
     Dosage: 1200 MG
     Dates: start: 20211209, end: 20211209
  18. DOXORUBICIN [Suspect]
     Active Substance: DOXORUBICIN
     Dosage: 1200 MG
     Dates: start: 20211209, end: 20211209
  19. NIRAPARIB [Suspect]
     Active Substance: NIRAPARIB
     Dosage: 1200 MG
     Dates: start: 20211209, end: 20211209
  20. PLACEBO [Suspect]
     Active Substance: UNSPECIFIED INGREDIENT
     Dosage: 1200 MG
     Dates: start: 20211209, end: 20211209
  21. ATEZOLIZUMAB [Suspect]
     Active Substance: ATEZOLIZUMAB
     Dosage: 840 MG / 1200 MG
     Dates: start: 20211230, end: 20211230
  22. DOXORUBICIN [Suspect]
     Active Substance: DOXORUBICIN
     Dosage: 840 MG / 1200 MG
     Dates: start: 20211230, end: 20211230
  23. NIRAPARIB [Suspect]
     Active Substance: NIRAPARIB
     Dosage: 840 MG / 1200 MG
     Dates: start: 20211230, end: 20211230
  24. PLACEBO [Suspect]
     Active Substance: UNSPECIFIED INGREDIENT
     Dosage: 840 MG / 1200 MG
     Dates: start: 20211230, end: 20211230
  25. ATEZOLIZUMAB [Suspect]
     Active Substance: ATEZOLIZUMAB
     Indication: Ovarian epithelial cancer
     Dosage: 200 MG
     Route: 048
     Dates: start: 20211028, end: 20220123
  26. DOXORUBICIN [Suspect]
     Active Substance: DOXORUBICIN
     Indication: Ovarian epithelial cancer
     Dosage: 200 MG
     Route: 048
     Dates: start: 20211028, end: 20220123
  27. NIRAPARIB [Suspect]
     Active Substance: NIRAPARIB
     Indication: Ovarian epithelial cancer
     Dosage: 200 MG
     Route: 048
     Dates: start: 20211028, end: 20220123
  28. PLACEBO [Suspect]
     Active Substance: UNSPECIFIED INGREDIENT
     Indication: Ovarian epithelial cancer
     Dosage: 200 MG
     Route: 048
     Dates: start: 20211028, end: 20220123
  29. ATEZOLIZUMAB [Suspect]
     Active Substance: ATEZOLIZUMAB
     Dosage: 200 MG
     Route: 048
     Dates: end: 20211209
  30. DOXORUBICIN [Suspect]
     Active Substance: DOXORUBICIN
     Dosage: 200 MG
     Route: 048
     Dates: end: 20211209
  31. NIRAPARIB [Suspect]
     Active Substance: NIRAPARIB
     Dosage: 200 MG
     Route: 048
     Dates: end: 20211209
  32. PLACEBO [Suspect]
     Active Substance: UNSPECIFIED INGREDIENT
     Dosage: 200 MG
     Route: 048
     Dates: end: 20211209
  33. ATEZOLIZUMAB [Suspect]
     Active Substance: ATEZOLIZUMAB
     Dosage: 200 MG
     Route: 048
     Dates: start: 20211209, end: 20211229
  34. DOXORUBICIN [Suspect]
     Active Substance: DOXORUBICIN
     Dosage: 200 MG
     Route: 048
     Dates: start: 20211209, end: 20211229
  35. NIRAPARIB [Suspect]
     Active Substance: NIRAPARIB
     Dosage: 200 MG
     Route: 048
     Dates: start: 20211209, end: 20211229
  36. PLACEBO [Suspect]
     Active Substance: UNSPECIFIED INGREDIENT
     Dosage: 200 MG
     Route: 048
     Dates: start: 20211209, end: 20211229
  37. CARBOPLATIN [Suspect]
     Active Substance: CARBOPLATIN
     Indication: Ovarian epithelial cancer
     Dosage: 408 MG
     Route: 042
     Dates: start: 20210420, end: 20210420
  38. CARBOPLATIN [Suspect]
     Active Substance: CARBOPLATIN
     Dosage: 408 MG
     Route: 042
     Dates: start: 20210909, end: 20210909
  39. DOXORUBICIN [Suspect]
     Active Substance: DOXORUBICIN
     Indication: Ovarian epithelial cancer
     Dosage: 46 MG
     Route: 042
     Dates: start: 20210420, end: 20210420
  40. DOXORUBICIN [Suspect]
     Active Substance: DOXORUBICIN
     Dosage: 46 MG
     Route: 042
     Dates: start: 20210909, end: 20210909

REACTIONS (1)
  - Transient ischaemic attack [Recovered/Resolved]

NARRATIVE: CASE EVENT DATE: 20211212
